FAERS Safety Report 8355957-3 (Version None)
Quarter: 2012Q2

REPORT INFORMATION
  Report Type: 
  Country: None (occurrence: None)
  Receive Date: 20120514
  Receipt Date: 20120507
  Transmission Date: 20120825
  Serious: Yes (Life-Threatening, Hospitalization, Other)
  Sender: FDA-Public Use
  Company Number: JP-BAYER-2011-115262

PATIENT
  Age: 86 Year
  Sex: Male
  Weight: 60 kg

DRUGS (4)
  1. NEXAVAR [Suspect]
     Indication: RENAL CELL CARCINOMA
     Dosage: 400 MG, QD
     Route: 048
     Dates: start: 20111109, end: 20111122
  2. FLIVASTATIN SODIUM [Suspect]
     Indication: BENIGN PROSTATIC HYPERPLASIA
     Dosage: 25 MG, BID
     Route: 048
     Dates: start: 20110704
  3. CHEMOTHERAPEUTICS NOS [Suspect]
  4. FLIVASTATIN SODIUM [Suspect]
     Indication: URINARY RETENTION
     Dosage: UNK
     Dates: start: 20111227

REACTIONS (26)
  - GASTROINTESTINAL HAEMORRHAGE [None]
  - THROMBOCYTOPENIA [None]
  - GASTRIC ULCER HAEMORRHAGE [None]
  - GASTRIC CANCER [None]
  - HYPONATRAEMIA [None]
  - DERMATITIS BULLOUS [None]
  - OEDEMA PERIPHERAL [None]
  - RENAL IMPAIRMENT [None]
  - PAIN OF SKIN [None]
  - EATING DISORDER [None]
  - ANAEMIA [None]
  - MALAISE [None]
  - DEPRESSED LEVEL OF CONSCIOUSNESS [None]
  - DRUG ERUPTION [None]
  - RASH ERYTHEMATOUS [None]
  - FACE OEDEMA [None]
  - BLOOD PRESSURE DECREASED [None]
  - SKIN EXFOLIATION [None]
  - PALMAR-PLANTAR ERYTHRODYSAESTHESIA SYNDROME [None]
  - MELAENA [None]
  - WHITE BLOOD CELL COUNT DECREASED [None]
  - PYREXIA [None]
  - HEPATIC FUNCTION ABNORMAL [None]
  - CHILLS [None]
  - SKIN ULCER HAEMORRHAGE [None]
  - URINARY RETENTION [None]
